FAERS Safety Report 7541346-8 (Version None)
Quarter: 2011Q2

REPORT INFORMATION
  Report Type: 
  Country: None (occurrence: None)
  Receive Date: 20110612
  Receipt Date: 20110601
  Transmission Date: 20111010
  Serious: Yes (Hospitalization)
  Sender: FDA-Public Use
  Company Number: FR-BRISTOL-MYERS SQUIBB COMPANY-15809924

PATIENT
  Age: 52 Year
  Sex: Male

DRUGS (1)
  1. MITOMYCIN [Suspect]
     Dosage: ENDOVESICAL INFUSION
     Route: 065
     Dates: start: 20110509, end: 20110509

REACTIONS (6)
  - FACE OEDEMA [None]
  - RASH PUSTULAR [None]
  - LOCALISED OEDEMA [None]
  - URTICARIA [None]
  - RASH GENERALISED [None]
  - OCULAR HYPERAEMIA [None]
